FAERS Safety Report 10200317 (Version 4)
Quarter: 2019Q1

REPORT INFORMATION
  Report Type: Spontaneous
  Country: BR (occurrence: BR)
  Receive Date: 20140527
  Receipt Date: 20190330
  Transmission Date: 20190417
  Serious: Yes (Other)
  Sender: FDA-Public Use
  Company Number: PHHY2014BR064834

PATIENT
  Age: 75 Year
  Sex: Female
  Weight: 74 kg

DRUGS (7)
  1. LEVOID [Concomitant]
     Active Substance: LEVOTHYROXINE
     Indication: THYROID DISORDER
     Dosage: IN THE MORNING
     Route: 065
  2. DIOVAN AMLO FIX [Suspect]
     Active Substance: AMLODIPINE\VALSARTAN
     Dosage: 1 DF, QD
     Route: 048
     Dates: start: 20140522
  3. DIOVAN AMLO FIX [Suspect]
     Active Substance: AMLODIPINE\VALSARTAN
     Dosage: 1 DF, QD (IN THE MORNING)
     Route: 048
  4. DIOVAN AMLO FIX [Suspect]
     Active Substance: AMLODIPINE\VALSARTAN
     Dosage: 1 DF, QD
     Route: 048
  5. ATENOLOL. [Concomitant]
     Active Substance: ATENOLOL
     Indication: HEART RATE IRREGULAR
     Route: 065
  6. DIOVAN AMLO FIX [Suspect]
     Active Substance: AMLODIPINE\VALSARTAN
     Indication: HYPERTENSION
     Dosage: 1 DF, QD
     Route: 048
     Dates: start: 201401
  7. SOMALGIN [Concomitant]
     Active Substance: ASPIRIN\DIHYDROXYALUMINUM AMINOACETATE ANHYDROUS\MAGNESIUM CARBONATE
     Indication: CARDIAC DISORDER
     Dosage: AFTER LUNCH
     Route: 065

REACTIONS (7)
  - Blood pressure inadequately controlled [Recovered/Resolved]
  - Blood pressure increased [Recovered/Resolved]
  - Tinnitus [Recovered/Resolved]
  - Drug ineffective [Recovered/Resolved]
  - Drug effect incomplete [Recovered/Resolved]
  - Abdominal discomfort [Recovered/Resolved]
  - Osteopenia [Recovered/Resolved]

NARRATIVE: CASE EVENT DATE: 201802
